FAERS Safety Report 8769897 (Version 1)
Quarter: 2012Q4

REPORT INFORMATION
  Report Type: 
  Country: US (occurrence: US)
  Receive Date: 20120906
  Receipt Date: 20120906
  Transmission Date: 20130627
  Serious: Yes (Hospitalization, Other)
  Sender: FDA-Public Use
  Company Number: US-ELI_LILLY_AND_COMPANY-US201209000315

PATIENT
  Sex: Male
  Weight: 69.84 kg

DRUGS (1)
  1. HUMALOG LISPRO [Suspect]
     Indication: DIABETES MELLITUS
     Dosage: UNK, unknown

REACTIONS (4)
  - Bladder cancer [Unknown]
  - Hypoglycaemic unconsciousness [Unknown]
  - Hyperglycaemia [Unknown]
  - Diabetic neuropathy [Unknown]
